FAERS Safety Report 14334112 (Version 1)
Quarter: 2017Q4

REPORT INFORMATION
  Report Type: Spontaneous
  Country: HR (occurrence: HR)
  Receive Date: 20171228
  Receipt Date: 20171228
  Transmission Date: 20180321
  Serious: Yes (Hospitalization)
  Sender: FDA-Public Use
  Company Number: HR-TEVA-2017-HR-837023

PATIENT
  Age: 39 Year
  Sex: Male

DRUGS (6)
  1. RISPERIDONE. [Suspect]
     Active Substance: RISPERIDONE
     Indication: PRODUCT USED FOR UNKNOWN INDICATION
     Dosage: 4 MILLIGRAM DAILY; DOSAGE FORM: UNSPECIFIED
     Route: 048
     Dates: start: 20071109
  2. DIAZEPAM. [Suspect]
     Active Substance: DIAZEPAM
     Indication: PRODUCT USED FOR UNKNOWN INDICATION
     Dosage: DOSAGE FORM: UNSPECIFIED
     Route: 065
     Dates: start: 20071109
  3. FLUVOXAMINE [Suspect]
     Active Substance: FLUVOXAMINE
     Indication: PRODUCT USED FOR UNKNOWN INDICATION
     Dosage: DOSAGE FORM: UNSPECIFIED
     Route: 065
     Dates: start: 20071109
  4. RISPERDAL CONSTA [Suspect]
     Active Substance: RISPERIDONE
     Indication: SCHIZOPHRENIA
     Route: 030
     Dates: start: 20071109, end: 2013
  5. RISPERIDONE. [Suspect]
     Active Substance: RISPERIDONE
     Indication: PRODUCT USED FOR UNKNOWN INDICATION
     Dosage: 6 MILLIGRAM DAILY; DOSAGE FORM: UNSPECIFIED
     Route: 048
     Dates: start: 200710, end: 200711
  6. FLUVOXAMINE [Suspect]
     Active Substance: FLUVOXAMINE
     Dosage: DOSAGE FORM: UNSPECIFIED
     Route: 065
     Dates: start: 2007, end: 2007

REACTIONS (2)
  - Schizophrenia [Recovered/Resolved]
  - Treatment noncompliance [Unknown]

NARRATIVE: CASE EVENT DATE: 2011
